FAERS Safety Report 13406918 (Version 3)
Quarter: 2019Q4

REPORT INFORMATION
  Report Type: Spontaneous
  Country: US (occurrence: US)
  Receive Date: 20170405
  Receipt Date: 20191030
  Transmission Date: 20200122
  Serious: Yes (Other)
  Sender: FDA-Public Use
  Company Number: US-PFIZER INC-2017149015

PATIENT
  Age: 62 Year
  Sex: Male

DRUGS (5)
  1. LEVITRA [Concomitant]
     Active Substance: VARDENAFIL HYDROCHLORIDE
     Indication: ERECTILE DYSFUNCTION
     Dosage: 20 MG, MONTHLY
     Dates: start: 20060329, end: 20120712
  2. OMEPRAZOLE. [Concomitant]
     Active Substance: OMEPRAZOLE
     Indication: DYSPEPSIA
     Dosage: UNK
     Dates: start: 2014
  3. VIAGRA [Suspect]
     Active Substance: SILDENAFIL CITRATE
     Dosage: UNK
     Route: 048
     Dates: start: 201306, end: 201406
  4. VIAGRA [Suspect]
     Active Substance: SILDENAFIL CITRATE
     Indication: ERECTILE DYSFUNCTION
     Dosage: 100 MG, MONTHLY
     Route: 048
     Dates: start: 20020401, end: 20140619
  5. KRILL OIL [Concomitant]
     Active Substance: DIETARY SUPPLEMENT\KRILL OIL
     Indication: PROPHYLAXIS
     Dosage: UNK
     Dates: start: 2014

REACTIONS (9)
  - Malignant melanoma [Unknown]
  - Depression [Unknown]
  - Malignant melanoma in situ [Unknown]
  - Lentigo maligna [Unknown]
  - Anxiety [Unknown]
  - Affective disorder [Unknown]
  - Nightmare [Unknown]
  - Insomnia [Unknown]
  - Panic attack [Unknown]

NARRATIVE: CASE EVENT DATE: 20091029
